FAERS Safety Report 17664154 (Version 4)
Quarter: 2020Q4

REPORT INFORMATION
  Report Type: Spontaneous
  Country: US (occurrence: US)
  Receive Date: 20200414
  Receipt Date: 20201210
  Transmission Date: 20210113
  Serious: Yes (Hospitalization, Other)
  Sender: FDA-Public Use
  Company Number: US-ASTRAZENECA-2020SE49634

PATIENT
  Age: 14327 Day
  Sex: Male

DRUGS (1)
  1. ZOMIG [Suspect]
     Active Substance: ZOLMITRIPTAN
     Indication: MIGRAINE
     Dosage: USE ONE SPRAY (2.5MG) INTO NOSTRIL AT THE ONSET OF HEADACHE AS DIRECTED
     Route: 045

REACTIONS (5)
  - Migraine [Unknown]
  - Pneumonia [Unknown]
  - Headache [Unknown]
  - Hepatic failure [Unknown]
  - Product quality issue [Unknown]

NARRATIVE: CASE EVENT DATE: 20201111
